FAERS Safety Report 16136093 (Version 2)
Quarter: 2019Q3

REPORT INFORMATION
  Report Type: Spontaneous
  Country: US (occurrence: US)
  Receive Date: 20190329
  Receipt Date: 20190927
  Transmission Date: 20191004
  Serious: Yes (Other)
  Sender: FDA-Public Use
  Company Number: US-MYLANLABS-2019M1027714

PATIENT
  Sex: Female

DRUGS (4)
  1. CHLORTALIDONE [Suspect]
     Active Substance: CHLORTHALIDONE
     Indication: INFLAMMATION
  2. CHLORTALIDONE [Suspect]
     Active Substance: CHLORTHALIDONE
     Indication: ARTHRALGIA
  3. CHLORTALIDONE [Suspect]
     Active Substance: CHLORTHALIDONE
     Indication: HYPOAESTHESIA
  4. CHLORTALIDONE [Suspect]
     Active Substance: CHLORTHALIDONE
     Indication: FLUID RETENTION

REACTIONS (11)
  - Migraine [Recovering/Resolving]
  - Rash [Unknown]
  - Anaphylactic shock [Unknown]
  - Hypersensitivity [Unknown]
  - Visual impairment [Unknown]
  - Weight increased [Unknown]
  - Dyspnoea [Unknown]
  - Heart rate increased [Unknown]
  - Therapeutic product effect decreased [Unknown]
  - Housebound [Unknown]
  - Vertigo [Unknown]
